FAERS Safety Report 4659242-2 (Version None)
Quarter: 2005Q2

REPORT INFORMATION
  Report Type: 
  Country: None (occurrence: None)
  Receive Date: 20050502
  Receipt Date: 20050301
  Transmission Date: 20051028
  Serious: Yes (Other)
  Sender: FDA-Public Use
  Company Number: 200511632US

PATIENT
  Age: 36 Year
  Sex: Male

DRUGS (5)
  1. KETEK [Suspect]
     Dosage: QD; PO
     Route: 048
  2. DIOVAN [Concomitant]
  3. RABEPRAZOLE SODIUM (ACIPHEX) [Concomitant]
  4. PARACETAMOL [Concomitant]
  5. TRAMADOL HYDROCHLORIDE (ULTRACET) [Concomitant]

REACTIONS (4)
  - ANAPHYLACTIC REACTION [None]
  - DIZZINESS [None]
  - FLUSHING [None]
  - SWOLLEN TONGUE [None]
